FAERS Safety Report 22370119 (Version 1)
Quarter: 2023Q2

REPORT INFORMATION
  Report Type: Spontaneous
  Country: TR (occurrence: TR)
  Receive Date: 20230526
  Receipt Date: 20230526
  Transmission Date: 20230722
  Serious: Yes (Other)
  Sender: FDA-Public Use
  Company Number: TR-PADAGIS-2023PAD00746

PATIENT

DRUGS (9)
  1. IBUPROFEN [Suspect]
     Active Substance: IBUPROFEN
     Indication: Product used for unknown indication
     Dosage: 600 MG/DAY, (FROM 1 WEEK 1 DAY TO 2 WEEKS 1 DAYS OF GESTATIONAL PERIOD)
     Route: 064
  2. DEXKETOPROFEN [Concomitant]
     Active Substance: DEXKETOPROFEN
     Indication: Product used for unknown indication
     Dosage: 25 MG/DAY, (FROM 1 WEEK 1 DAY TO 2 WEEKS 1 DAYS OF GESTATIONAL PERIOD)
     Route: 064
  3. ASPIRIN [Concomitant]
     Active Substance: ASPIRIN
     Indication: Product used for unknown indication
     Dosage: 100 MG/DAY, DAY (FROM 0 WEEK 6 DAY TO 3 WEEKS 6 DAYS OF GESTATIONAL PERIOD)
     Route: 064
  4. PSEUDOEPHEDRINE HYDROCHLORIDE [Concomitant]
     Active Substance: PSEUDOEPHEDRINE HYDROCHLORIDE
     Indication: Product used for unknown indication
     Dosage: 90 MG/DAY, (FROM 1 WEEK 1 DAY TO 2 WEEKS 1 DAYS OF GESTATIONAL PERIOD)
     Route: 064
  5. VITAMIN C [Concomitant]
     Active Substance: ASCORBIC ACID
     Indication: Product used for unknown indication
     Dosage: 900 MG/DAY, (FROM 1 WEEK 1 DAY TO 2 WEEKS 1 DAYS OF GESTATIONAL PERIOD)
     Route: 064
  6. FAVIPIRAVIR [Concomitant]
     Active Substance: FAVIPIRAVIR
     Indication: Product used for unknown indication
     Dosage: 1600 MG (LOADING DOSE 2X1600 MG WITHIN 24 HOURS FROM PRECONCEPTIONAL 15TH DAYS TO 11 DAYS))
     Route: 064
  7. FAVIPIRAVIR [Concomitant]
     Active Substance: FAVIPIRAVIR
     Dosage: 600 MG, BID (CUMULATIVE DOSE 8000 MG (MAINTENANCE DOSE FROM PRECONCEPTIONAL 15TH DAYS TO 11 DAYS)
     Route: 064
  8. FAVIPIRAVIR [Concomitant]
     Active Substance: FAVIPIRAVIR
     Dosage: 1600 MG BID  WITHIN 24 HOURS , (LOADING DOSEFROM 0 WEEKS 6 DAYS TO 1 WEEKS 3 DAYS))
     Route: 064
  9. FAVIPIRAVIR [Concomitant]
     Active Substance: FAVIPIRAVIR
     Dosage: 600 MG,BID(MAINTENANCE DOSE, FROM 0 WEEKS 6 DAYS TO 1 WEEKS 3 DAYS)
     Route: 064

REACTIONS (3)
  - Neonatal respiratory distress [Unknown]
  - Low birth weight baby [Unknown]
  - Foetal exposure during pregnancy [Unknown]
